FAERS Safety Report 6902904-4 (Version None)
Quarter: 2010Q3

REPORT INFORMATION
  Report Type: 
  Country: None (occurrence: None)
  Receive Date: 20100803
  Receipt Date: 20080616
  Transmission Date: 20110219
  Serious: No
  Sender: FDA-Public Use
  Company Number: US-PFIZER INC-2008036023

PATIENT
  Sex: Male
  Weight: 88.9 kg

DRUGS (12)
  1. LYRICA [Suspect]
     Indication: NEUROPATHY PERIPHERAL
     Dates: start: 20080201, end: 20080410
  2. ACTOS [Concomitant]
     Indication: DIABETES MELLITUS
  3. CELEBREX [Concomitant]
  4. PREVACID [Concomitant]
  5. TAMSULOSIN HYDROCHLORIDE [Concomitant]
  6. GLIPIZIDE [Concomitant]
     Indication: DIABETES MELLITUS
  7. VERAPAMIL [Concomitant]
  8. HYDROCODONE BITARTRATE [Concomitant]
  9. LEVOTHROID [Concomitant]
  10. METFORMIN HCL [Concomitant]
  11. LIPITOR [Concomitant]
  12. GEMFIBROZIL [Concomitant]

REACTIONS (5)
  - ERYTHEMA [None]
  - EUPHORIC MOOD [None]
  - OEDEMA PERIPHERAL [None]
  - PYREXIA [None]
  - SKIN EXFOLIATION [None]
